FAERS Safety Report 9523152 (Version 2)
Quarter: 2014Q2

REPORT INFORMATION
  Report Type: Spontaneous
  Country: US (occurrence: US)
  Receive Date: 20130913
  Receipt Date: 20140502
  Transmission Date: 20141212
  Serious: Yes (Hospitalization)
  Sender: FDA-Public Use
  Company Number: US-GLAXOSMITHKLINE-A1019731A

PATIENT
  Age: 55 Year
  Sex: Female

DRUGS (2)
  1. FLOLAN [Suspect]
     Indication: PULMONARY ARTERIAL HYPERTENSION
     Dosage: 36NGKM CONTINUOUS
     Route: 042
     Dates: start: 20120403
  2. COUMADIN [Concomitant]

REACTIONS (4)
  - Food poisoning [Unknown]
  - Myalgia [Unknown]
  - Catheter site infection [Recovering/Resolving]
  - Catheter site erythema [Unknown]
